FAERS Safety Report 12427428 (Version 1)
Quarter: 2016Q2

REPORT INFORMATION
  Report Type: Report from Study
  Country: US (occurrence: US)
  Receive Date: 20160602
  Receipt Date: 20160602
  Transmission Date: 20160815
  Serious: No
  Sender: FDA-Public Use
  Company Number: US-ALEXION-A201603824

PATIENT
  Sex: Male

DRUGS (1)
  1. SOLIRIS [Suspect]
     Active Substance: ECULIZUMAB
     Indication: HAEMOLYTIC URAEMIC SYNDROME
     Dosage: UNK
     Route: 042
     Dates: start: 20160324, end: 20160505

REACTIONS (4)
  - Back injury [Unknown]
  - Hypotension [Unknown]
  - Fall [Recovered/Resolved]
  - Joint injury [Unknown]

NARRATIVE: CASE EVENT DATE: 20160519
